FAERS Safety Report 13766530 (Version 1)
Quarter: 2017Q3

REPORT INFORMATION
  Report Type: Spontaneous
  Country: US (occurrence: US)
  Receive Date: 20170718
  Receipt Date: 20170718
  Transmission Date: 20171127
  Serious: No
  Sender: FDA-Public Use
  Company Number: None

PATIENT
  Age: 62 Year
  Sex: Female

DRUGS (1)
  1. COPAXONE [Suspect]
     Active Substance: GLATIRAMER ACETATE
     Indication: MULTIPLE SCLEROSIS
     Dosage: ?          OTHER DOSE:ML;OTHER FREQUENCY:THREE TIMES WEEKLY;?
     Route: 058
     Dates: start: 20150814, end: 20170717

REACTIONS (2)
  - Oedema [None]
  - Injection site reaction [None]

NARRATIVE: CASE EVENT DATE: 20170718
